FAERS Safety Report 12291738 (Version 1)
Quarter: 2016Q2

REPORT INFORMATION
  Report Type: Spontaneous
  Country: GB (occurrence: GB)
  Receive Date: 20160421
  Receipt Date: 20160421
  Transmission Date: 20160815
  Serious: Yes (Hospitalization)
  Sender: FDA-Public Use
  Company Number: GB-UNICHEM LABORATORIES LIMITED-UCM201508-000541

PATIENT
  Age: 30 Year
  Sex: Male

DRUGS (6)
  1. CLONIDINE HCL [Suspect]
     Active Substance: CLONIDINE HYDROCHLORIDE
  2. CLONIDINE HCL [Suspect]
     Active Substance: CLONIDINE HYDROCHLORIDE
  3. ALFENTANIL. [Concomitant]
     Active Substance: ALFENTANIL
  4. PROPOFOL. [Concomitant]
     Active Substance: PROPOFOL
  5. CLONIDINE HCL [Suspect]
     Active Substance: CLONIDINE HYDROCHLORIDE
     Route: 048
  6. CLONIDINE HCL [Suspect]
     Active Substance: CLONIDINE HYDROCHLORIDE
     Route: 048

REACTIONS (9)
  - Hypertension [Recovered/Resolved]
  - Pyrexia [Recovered/Resolved]
  - Respiratory distress [Recovered/Resolved]
  - Tachycardia [Recovered/Resolved]
  - Hyperhidrosis [Recovered/Resolved]
  - Drug withdrawal syndrome [Recovered/Resolved]
  - Lacrimation increased [Recovered/Resolved]
  - Product use issue [Unknown]
  - Acute pulmonary oedema [Recovered/Resolved]
